FAERS Safety Report 5363275-0 (Version None)
Quarter: 2007Q2

REPORT INFORMATION
  Report Type: 
  Country: None (occurrence: None)
  Receive Date: 20070530
  Receipt Date: 20070530
  Transmission Date: 20071010
  Serious: No
  Sender: FDA-Public Use
  Company Number: 2007PV027820

PATIENT
  Age: 63 Year
  Sex: Female
  Weight: 89.8122 kg

DRUGS (10)
  1. BYETTA [Suspect]
     Indication: DIABETES MELLITUS NON-INSULIN-DEPENDENT
     Dosage: 10 MCG;BID;SC ; 5 MCG;BID;SC
     Route: 058
     Dates: start: 20061116, end: 20061215
  2. BYETTA [Suspect]
     Indication: DIABETES MELLITUS NON-INSULIN-DEPENDENT
     Dosage: 10 MCG;BID;SC ; 5 MCG;BID;SC
     Route: 058
     Dates: start: 20061216
  3. METFORMIN HCL [Concomitant]
  4. PRANDIN [Concomitant]
  5. ACTOS [Concomitant]
  6. PREVACID [Concomitant]
  7. ASPIRIN [Concomitant]
  8. TUMS [Concomitant]
  9. GLUCOPHAGE - SLOW RELEASE [Concomitant]
  10. .. [Concomitant]

REACTIONS (6)
  - DYSPNOEA [None]
  - GASTROOESOPHAGEAL REFLUX DISEASE [None]
  - HEART RATE INCREASED [None]
  - INJECTION SITE BRUISING [None]
  - INJECTION SITE HAEMORRHAGE [None]
  - INJECTION SITE PAIN [None]
